FAERS Safety Report 7152100-3 (Version None)
Quarter: 2010Q4

REPORT INFORMATION
  Report Type: 
  Country: None (occurrence: None)
  Receive Date: 20101213
  Receipt Date: 20101202
  Transmission Date: 20110411
  Serious: Yes (Hospitalization)
  Sender: FDA-Public Use
  Company Number: US-BIOGENIDEC-2010BI042427

PATIENT
  Age: 40 Year
  Sex: Female
  Weight: 62 kg

DRUGS (3)
  1. TYSABRI [Suspect]
     Indication: MULTIPLE SCLEROSIS
     Route: 042
     Dates: start: 20100721
  2. PRISTIQ [Concomitant]
     Indication: DEPRESSION
     Dates: start: 20091201
  3. TRAZODONE HCL [Concomitant]
     Indication: INSOMNIA
     Dates: start: 20100401

REACTIONS (7)
  - BACK PAIN [None]
  - FALL [None]
  - NASOPHARYNGITIS [None]
  - SEPSIS [None]
  - URINARY TRACT INFECTION [None]
  - VITAMIN D DEFICIENCY [None]
  - WEIGHT DECREASED [None]
